FAERS Safety Report 5923343-9 (Version None)
Quarter: 2008Q4

REPORT INFORMATION
  Report Type: 
  Country: None (occurrence: None)
  Receive Date: 20081020
  Receipt Date: 20080901
  Transmission Date: 20090506
  Serious: Yes (Other)
  Sender: FDA-Public Use
  Company Number: AU-ELI_LILLY_AND_COMPANY-AU200806003558

PATIENT
  Sex: Male

DRUGS (6)
  1. STRATTERA [Suspect]
     Indication: ATTENTION DEFICIT/HYPERACTIVITY DISORDER
     Dosage: 85 MG, DAILY (1/D)
     Route: 048
  2. STRATTERA [Suspect]
     Dosage: 100 MG, DAILY (1/D)
     Route: 048
  3. STRATTERA [Suspect]
     Dosage: 60 MG, DAILY (1/D)
     Route: 048
  4. STRATTERA [Suspect]
     Dosage: 85 MG (60/25), DAILY (1/D)
     Route: 048
     Dates: start: 20080818
  5. STRATTERA [Suspect]
     Dosage: 40 MG, 2/D
     Route: 048
  6. STRATTERA [Suspect]
     Dosage: 85 MG (60/25), DAILY (1/D)
     Route: 048
     Dates: start: 20080811

REACTIONS (5)
  - DRY MOUTH [None]
  - HYPOAESTHESIA [None]
  - SUPRAVENTRICULAR EXTRASYSTOLES [None]
  - VENTRICULAR EXTRASYSTOLES [None]
  - WEIGHT DECREASED [None]
